FAERS Safety Report 12468562 (Version 1)
Quarter: 2016Q2

REPORT INFORMATION
  Report Type: Spontaneous
  Country: US (occurrence: US)
  Receive Date: 20160615
  Receipt Date: 20160615
  Transmission Date: 20160815
  Serious: Yes (Other)
  Sender: FDA-Public Use
  Company Number: US-BAXTER-2016BAX030912

PATIENT
  Age: 60 Year
  Sex: Female

DRUGS (5)
  1. 50% DEXTROSE INJECTION USP [Suspect]
     Active Substance: DEXTROSE
     Route: 042
  2. 50% DEXTROSE INJECTION USP [Suspect]
     Active Substance: DEXTROSE
     Route: 042
  3. 50% DEXTROSE INJECTION USP [Suspect]
     Active Substance: DEXTROSE
     Route: 042
  4. 50% DEXTROSE INJECTION USP [Suspect]
     Active Substance: DEXTROSE
     Indication: HYPOGLYCAEMIA
     Route: 042
  5. EPINEPHRINE. [Concomitant]
     Active Substance: EPINEPHRINE
     Indication: BLOOD PRESSURE MANAGEMENT
     Dosage: 2 MICROGRAM PER MINUTE
     Route: 042

REACTIONS (1)
  - Hypotension [Unknown]
